FAERS Safety Report 12162763 (Version 1)
Quarter: 2016Q1

REPORT INFORMATION
  Report Type: Spontaneous
  Country: None (occurrence: None)
  Receive Date: 20160308
  Receipt Date: 20160308
  Transmission Date: 20160526
  Serious: No
  Sender: FDA-Public Use
  Company Number: None

PATIENT
  Age: 56 Year
  Sex: Female

DRUGS (1)
  1. AMLODIPINE [Suspect]
     Active Substance: AMLODIPINE BESYLATE
     Indication: HYPERTENSION
     Dosage: 1 ONCE DAILY
     Route: 048
     Dates: start: 20160205, end: 20160304

REACTIONS (9)
  - Vision blurred [None]
  - Dyspepsia [None]
  - Pollakiuria [None]
  - Dizziness [None]
  - Dry mouth [None]
  - Nausea [None]
  - Decreased appetite [None]
  - Therapeutic response unexpected [None]
  - Fatigue [None]

NARRATIVE: CASE EVENT DATE: 20160205
